FAERS Safety Report 5056774-2 (Version None)
Quarter: 2006Q2

REPORT INFORMATION
  Report Type: 
  Country: None (occurrence: None)
  Receive Date: 20060619
  Receipt Date: 20050607
  Transmission Date: 20061013
  Serious: Yes (Hospitalization)
  Sender: FDA-Public Use
  Company Number: US-2005-007674

PATIENT
  Age: 69 Year
  Sex: Male
  Weight: 77.1 kg

DRUGS (3)
  1. FLUDARA [Suspect]
     Indication: CHRONIC LYMPHOCYTIC LEUKAEMIA
     Dosage: 25MG/M2 X 5D Q28D, INTRAVENOUS
     Route: 042
     Dates: start: 19980615, end: 19980619
  2. FLUDARA [Suspect]
     Indication: CHRONIC LYMPHOCYTIC LEUKAEMIA
     Dosage: 25MG/M2 X 5D Q28D, INTRAVENOUS
     Route: 042
     Dates: start: 19980713, end: 19980718
  3. FLUDARA [Suspect]
     Indication: CHRONIC LYMPHOCYTIC LEUKAEMIA
     Dosage: 25MG/M2 X 5D Q28D, INTRAVENOUS
     Route: 042
     Dates: start: 19980810, end: 19980814

REACTIONS (2)
  - LUNG INFILTRATION [None]
  - PYREXIA [None]
